FAERS Safety Report 17657112 (Version 4)
Quarter: 2021Q2

REPORT INFORMATION
  Report Type: Spontaneous
  Country: US (occurrence: US)
  Receive Date: 20200410
  Receipt Date: 20210408
  Transmission Date: 20210716
  Serious: Yes (Life-Threatening)
  Sender: FDA-Public Use
  Company Number: US-PFIZER INC-2020144211

PATIENT
  Age: 2 Month
  Sex: Male
  Weight: 12 kg

DRUGS (5)
  1. BUPIVACAINE HCL [Suspect]
     Active Substance: BUPIVACAINE HYDROCHLORIDE
     Dosage: TOTAL DOSE OF 22.5 MG
  2. BUPIVACAINE HCL [Suspect]
     Active Substance: BUPIVACAINE HYDROCHLORIDE
     Dosage: 1.5 ML, SINGLE
     Route: 007
  3. LIDOCAINE HCL [Suspect]
     Active Substance: LIDOCAINE HYDROCHLORIDE
     Indication: LOCAL ANAESTHESIA
     Dosage: 1.5 ML, SINGLE
  4. LIDOCAINE HCL [Suspect]
     Active Substance: LIDOCAINE HYDROCHLORIDE
     Dosage: TOTAL DOSE OF 120 MG
  5. HYALURONIDASE [Suspect]
     Active Substance: HYALURONIDASE
     Indication: GENERAL ANAESTHESIA
     Dosage: 7.5 IU/ML, SINGLE
     Route: 007

REACTIONS (9)
  - Tachycardia [Recovered/Resolved]
  - Electrocardiogram ST segment elevation [Recovered/Resolved]
  - Local anaesthetic systemic toxicity [Recovered/Resolved]
  - Oxygen saturation decreased [Recovered/Resolved]
  - Off label use [Unknown]
  - Overdose [Unknown]
  - Generalised tonic-clonic seizure [Recovered/Resolved]
  - Agitation [Recovered/Resolved]
  - Electrocardiogram T wave amplitude increased [Recovered/Resolved]
